FAERS Safety Report 6249513-0 (Version None)
Quarter: 2009Q2

REPORT INFORMATION
  Report Type: 
  Country: None (occurrence: None)
  Receive Date: 20090629
  Receipt Date: 20090619
  Transmission Date: 20091009
  Serious: Yes (Other)
  Sender: FDA-Public Use
  Company Number: B0579901A

PATIENT
  Age: 28 Year
  Sex: Male

DRUGS (3)
  1. PAXIL [Suspect]
     Dosage: 20MG PER DAY
     Route: 048
     Dates: start: 20090530
  2. DESYREL [Concomitant]
     Dosage: 2.5MG PER DAY
     Route: 048
  3. EVAMYL [Concomitant]
     Dosage: 1MG PER DAY
     Route: 048

REACTIONS (3)
  - AGGRESSION [None]
  - AMNESIA [None]
  - DELIRIUM [None]
